FAERS Safety Report 9057922 (Version 1)
Quarter: 2013Q1

REPORT INFORMATION
  Report Type: Spontaneous
  Country: US (occurrence: None)
  Receive Date: 20130204
  Receipt Date: 20130204
  Transmission Date: 20140127
  Serious: Yes (Hospitalization)
  Sender: FDA-Public Use
  Company Number: None

PATIENT
  Sex: Male
  Weight: 86 kg

DRUGS (2)
  1. CYTARABINE [Suspect]
     Dates: end: 20120930
  2. IDARUBICIN [Suspect]

REACTIONS (3)
  - Pyrexia [None]
  - Streptococcus test positive [None]
  - Blood count abnormal [None]
